FAERS Safety Report 7384873-9 (Version None)
Quarter: 2011Q1

REPORT INFORMATION
  Report Type: 
  Country: None (occurrence: None)
  Receive Date: 20110330
  Receipt Date: 20110317
  Transmission Date: 20110831
  Serious: Yes (Life-Threatening, Hospitalization, Other)
  Sender: FDA-Public Use
  Company Number: JP-PFIZER INC-2010024725

PATIENT
  Age: 79 Year
  Sex: Male
  Weight: 51 kg

DRUGS (11)
  1. ERBITUX [Suspect]
     Dosage: 375 MG/BODY, UNK
     Route: 041
     Dates: start: 20090910, end: 20090910
  2. CAMPTOSAR [Suspect]
     Indication: COLORECTAL CANCER
     Dosage: 224 MG/BODY, UNK
     Route: 041
     Dates: start: 20090903, end: 20090903
  3. FLUOROURACIL [Suspect]
     Indication: COLORECTAL CANCER
     Dosage: 600 MG/BODY, (408.2 MG/M2)
     Route: 040
     Dates: start: 20090903, end: 20090903
  4. ERBITUX [Suspect]
     Dosage: 280 MG/BODY, UNK
     Route: 041
     Dates: start: 20100105, end: 20100112
  5. CAMPTOSAR [Suspect]
     Dosage: 140 MG/BODY, UNK
     Route: 041
     Dates: start: 20100105, end: 20100105
  6. ERBITUX [Suspect]
     Indication: COLORECTAL CANCER
     Dosage: 605 MG/BODY, UNK
     Route: 041
     Dates: start: 20090903, end: 20090903
  7. MIDAZOLAM [Concomitant]
     Indication: SEDATION
     Dosage: 100 MG, UNK
     Route: 041
     Dates: start: 20090917, end: 20090918
  8. ALBUMIN NORMAL HUMAN SERUM [Concomitant]
     Indication: HYPOALBUMINAEMIA
     Dosage: 50ML SID, BID, SID
     Route: 041
     Dates: start: 20090917, end: 20090922
  9. RED BLOOD CELLS, LEUCOCYTE DEPLETED [Concomitant]
     Indication: ANAEMIA
     Dosage: 1 DF, UNK
     Route: 041
     Dates: start: 20090928, end: 20090930
  10. FLUOROURACIL [Suspect]
     Dosage: 3600 MG/BODY, (2449 MG/M2)
     Route: 041
     Dates: start: 20090903, end: 20090903
  11. CALCIUM LEVOFOLINATE [Concomitant]
     Indication: COLORECTAL CANCER
     Dosage: 300 MG, UNK
     Route: 041
     Dates: start: 20090903, end: 20090903

REACTIONS (11)
  - RESPIRATORY ALKALOSIS [None]
  - NEUTROPENIA [None]
  - HYPOTENSION [None]
  - ILEUS PARALYTIC [None]
  - LEUKOPENIA [None]
  - HAEMOGLOBIN DECREASED [None]
  - METABOLIC ACIDOSIS [None]
  - RESPIRATORY FAILURE [None]
  - DISSEMINATED INTRAVASCULAR COAGULATION [None]
  - THROMBOCYTOPENIA [None]
  - PYREXIA [None]
